FAERS Safety Report 11191898 (Version 2)
Quarter: 2015Q2

REPORT INFORMATION
  Report Type: Spontaneous
  Country: IT (occurrence: IT)
  Receive Date: 20150616
  Receipt Date: 20150622
  Transmission Date: 20150821
  Serious: Yes (Other)
  Sender: FDA-Public Use
  Company Number: IT-ROCHE-1594714

PATIENT
  Age: 78 Year
  Sex: Female

DRUGS (4)
  1. ASCRIPTIN [Concomitant]
     Active Substance: ASPIRIN
  2. MEPRAL [Concomitant]
     Active Substance: OMEPRAZOLE SODIUM
  3. NORVASC [Concomitant]
     Active Substance: AMLODIPINE BESYLATE
  4. LUCENTIS [Suspect]
     Active Substance: RANIBIZUMAB
     Indication: NEOVASCULAR AGE-RELATED MACULAR DEGENERATION
     Route: 050
     Dates: start: 20150526, end: 20150526

REACTIONS (2)
  - Retinal artery thrombosis [Recovered/Resolved with Sequelae]
  - Amaurosis fugax [Recovered/Resolved with Sequelae]

NARRATIVE: CASE EVENT DATE: 20150527
